FAERS Safety Report 11710727 (Version 1)
Quarter: 2015Q4

REPORT INFORMATION
  Report Type: Spontaneous
  Country: US (occurrence: US)
  Receive Date: 20151104
  Receipt Date: 20151104
  Transmission Date: 20160304
  Serious: No
  Sender: FDA-Public Use
  Company Number: US-ELI_LILLY_AND_COMPANY-US201101004949

PATIENT
  Sex: Female

DRUGS (2)
  1. FORTEO [Suspect]
     Active Substance: TERIPARATIDE
     Indication: OSTEOPOROSIS
  2. FORTEO [Suspect]
     Active Substance: TERIPARATIDE
     Dosage: UNK

REACTIONS (8)
  - Hypertension [Unknown]
  - Headache [Unknown]
  - Eye pain [Unknown]
  - Malaise [Unknown]
  - Feeling abnormal [Unknown]
  - Heart rate increased [Unknown]
  - Arthralgia [Unknown]
  - Dyspnoea [Unknown]
